FAERS Safety Report 6219135-6 (Version None)
Quarter: 2009Q2

REPORT INFORMATION
  Report Type: 
  Country: None (occurrence: None)
  Receive Date: 20090605
  Receipt Date: 20090605
  Transmission Date: 20091009
  Serious: Yes (Hospitalization)
  Sender: FDA-Public Use
  Company Number: None

PATIENT
  Age: 61 Year
  Sex: Male
  Weight: 98.9 kg

DRUGS (1)
  1. LISINOPRIL AND HYDROCHLOROTHIAZIDE [Suspect]
     Indication: HYPERTENSION
     Dosage: 6.25/10 MG EVERY DAY PO
     Route: 048
     Dates: start: 20080806, end: 20090512

REACTIONS (5)
  - ANGIOEDEMA [None]
  - BLOOD PRESSURE INCREASED [None]
  - DYSPNOEA [None]
  - PAIN [None]
  - RASH [None]
